FAERS Safety Report 9358051 (Version 2)
Quarter: 2013Q3

REPORT INFORMATION
  Report Type: Spontaneous
  Country: IT (occurrence: IT)
  Receive Date: 20130620
  Receipt Date: 20130708
  Transmission Date: 20140515
  Serious: Yes (Hospitalization)
  Sender: FDA-Public Use
  Company Number: IT-ABBOTT-13P-083-1105064-00

PATIENT
  Age: 53 Year
  Sex: Female
  Weight: 56 kg

DRUGS (1)
  1. HUMIRA [Suspect]
     Indication: PSORIATIC ARTHROPATHY
     Route: 058
     Dates: start: 20130501

REACTIONS (2)
  - Dermo-hypodermitis [Recovering/Resolving]
  - Lymphangiopathy [Unknown]
